FAERS Safety Report 8766323 (Version 1)
Quarter: 2012Q4

REPORT INFORMATION
  Report Type: 
  Country: AR (occurrence: AR)
  Receive Date: 20120904
  Receipt Date: 20120904
  Transmission Date: 20130627
  Serious: Yes (Other)
  Sender: FDA-Public Use
  Company Number: AR-ROCHE-1114764

PATIENT
  Sex: Female

DRUGS (1)
  1. LUCENTIS [Suspect]
     Indication: GLAUCOMA
     Route: 050
     Dates: start: 201203

REACTIONS (1)
  - Diabetes mellitus inadequate control [Recovering/Resolving]
